FAERS Safety Report 8957583 (Version 2)
Quarter: 2013Q2

REPORT INFORMATION
  Report Type: Spontaneous
  Country: US (occurrence: US)
  Receive Date: 20121211
  Receipt Date: 20130611
  Transmission Date: 20140414
  Serious: Yes (Other)
  Sender: FDA-Public Use
  Company Number: US-BAYER-2012-129134

PATIENT
  Age: 83 Year
  Sex: Female
  Weight: 52.15 kg

DRUGS (1)
  1. BAYER ADVANCED ASPIRIN EXTRA STRENGTH [Suspect]
     Indication: ARTHRITIS
     Dosage: 2 DF, PRN
     Route: 048
     Dates: start: 201211, end: 20121204

REACTIONS (2)
  - Choking sensation [Recovered/Resolved]
  - Throat irritation [Recovered/Resolved]
